FAERS Safety Report 8093940-6 (Version None)
Quarter: 2012Q1

REPORT INFORMATION
  Report Type: 
  Country: None (occurrence: None)
  Receive Date: 20120130
  Receipt Date: 20120124
  Transmission Date: 20120608
  Serious: Yes (Death, Other)
  Sender: FDA-Public Use
  Company Number: US-CELGENEUS-163-21880-12012595

PATIENT
  Age: 67 Year
  Sex: Female

DRUGS (5)
  1. NORTRIPTYLINE HCL [Suspect]
     Route: 065
  2. ACYCLOVIR [Concomitant]
     Route: 065
  3. OMEPRAZOLE [Concomitant]
     Route: 065
  4. GABAPENTIN [Concomitant]
     Route: 065
  5. REVLIMID [Suspect]
     Indication: MULTIPLE MYELOMA
     Dosage: 5 MILLIGRAM
     Route: 048
     Dates: start: 20110101, end: 20110601

REACTIONS (2)
  - DEATH [None]
  - DISEASE PROGRESSION [None]
